FAERS Safety Report 5630526-4 (Version None)
Quarter: 2008Q1

REPORT INFORMATION
  Report Type: 
  Country: None (occurrence: None)
  Receive Date: 20080219
  Receipt Date: 20080208
  Transmission Date: 20080703
  Serious: Yes (Death, Hospitalization, Other)
  Sender: FDA-Public Use
  Company Number: PHHY2008BR01492

PATIENT
  Age: 75 Year
  Sex: Male

DRUGS (3)
  1. ZELMAC [Suspect]
     Indication: CONSTIPATION
     Route: 048
  2. DAONIL [Concomitant]
     Indication: DIABETES MELLITUS
  3. ADALAT SL - SLOW RELEASE [Concomitant]
     Indication: HYPERTENSION

REACTIONS (5)
  - CAROTID ARTERY ANEURYSM [None]
  - CEREBROVASCULAR ACCIDENT [None]
  - COMA [None]
  - DEATH [None]
  - STENT PLACEMENT [None]
